FAERS Safety Report 24631180 (Version 1)
Quarter: 2024Q4

REPORT INFORMATION
  Report Type: Spontaneous
  Country: US (occurrence: US)
  Receive Date: 20241118
  Receipt Date: 20241118
  Transmission Date: 20250115
  Serious: No
  Sender: PAREXEL
  Company Number: US-COHERUS BIOSCIENCES, INC-2024-COH-US000812

PATIENT

DRUGS (3)
  1. LOQTORZI [Suspect]
     Active Substance: TORIPALIMAB-TPZI
     Indication: Nasopharyngeal cancer
     Dosage: UNK UNK, Q3WEEKS
     Route: 065
     Dates: start: 202402
  2. CLINDAMYCIN [Suspect]
     Active Substance: CLINDAMYCIN
     Indication: Sinusitis
     Dosage: UNK
     Dates: start: 2024
  3. CLINDAMYCIN [Suspect]
     Active Substance: CLINDAMYCIN
     Indication: Nasopharyngitis

REACTIONS (1)
  - Hypersensitivity [Recovered/Resolved]

NARRATIVE: CASE EVENT DATE: 20240101
